FAERS Safety Report 9580688 (Version 3)
Quarter: 2013Q4

REPORT INFORMATION
  Report Type: Spontaneous
  Country: US (occurrence: US)
  Receive Date: 20131002
  Receipt Date: 20131217
  Transmission Date: 20140711
  Serious: Yes (Death)
  Sender: FDA-Public Use
  Company Number: US-PFIZER INC-2013277595

PATIENT
  Age: 57 Year
  Sex: Female

DRUGS (4)
  1. CELEBREX [Suspect]
     Indication: ARTHRITIS
     Dosage: 100 MG, 3X/DAY
     Route: 048
  2. CELEBREX [Suspect]
     Dosage: UNK
     Route: 048
  3. TRICOR [Concomitant]
     Dosage: 145 MG, UNK
  4. CYMBALTA [Concomitant]
     Dosage: 30 MG, UNK

REACTIONS (1)
  - Neoplasm malignant [Fatal]
